FAERS Safety Report 9739156 (Version 2)
Quarter: 2014Q1

REPORT INFORMATION
  Report Type: Spontaneous
  Country: US (occurrence: US)
  Receive Date: 20131209
  Receipt Date: 20140108
  Transmission Date: 20141002
  Serious: Yes (Life-Threatening, Disabling, Other)
  Sender: FDA-Public Use
  Company Number: US-ASTELLAS-2013US012687

PATIENT
  Age: 56 Year
  Sex: Male
  Weight: 58 kg

DRUGS (3)
  1. PROGRAF [Suspect]
     Indication: LIVER TRANSPLANT
     Dosage: 1 MG, BID
     Route: 048
     Dates: start: 20091123
  2. METOPROLOL [Concomitant]
     Indication: BLOOD PRESSURE
     Dosage: 50 MG, UID/QD
     Route: 048
     Dates: start: 201009
  3. FLECAINIDE [Concomitant]
     Indication: ARRHYTHMIA
     Dosage: 100 MG, BID
     Dates: start: 201009

REACTIONS (7)
  - Extrasystoles [Recovering/Resolving]
  - Chronic myeloid leukaemia [Recovering/Resolving]
  - Asthenia [Not Recovered/Not Resolved]
  - Negative thoughts [Recovered/Resolved]
  - Fall [Recovered/Resolved]
  - Feeling abnormal [Recovered/Resolved]
  - Dizziness [Recovering/Resolving]
